FAERS Safety Report 13538701 (Version 1)
Quarter: 2017Q2

REPORT INFORMATION
  Report Type: Spontaneous
  Country: US (occurrence: US)
  Receive Date: 20170512
  Receipt Date: 20170512
  Transmission Date: 20170830
  Serious: Yes (Life-Threatening, Other)
  Sender: FDA-Public Use
  Company Number: US-ACCORD-051318

PATIENT
  Age: 61 Year
  Sex: Male

DRUGS (2)
  1. PEMETREXED. [Suspect]
     Active Substance: PEMETREXED
     Indication: LUNG ADENOCARCINOMA STAGE IV
  2. CISPLATIN. [Suspect]
     Active Substance: CISPLATIN
     Indication: LUNG ADENOCARCINOMA STAGE IV
     Dosage: 1 DF= 1 MG/ML

REACTIONS (2)
  - Off label use [Unknown]
  - Drug ineffective [Unknown]
